FAERS Safety Report 13340412 (Version 5)
Quarter: 2019Q3

REPORT INFORMATION
  Report Type: Spontaneous
  Country: US (occurrence: US)
  Receive Date: 20170316
  Receipt Date: 20190710
  Transmission Date: 20191004
  Serious: No
  Sender: FDA-Public Use
  Company Number: US-PFIZER INC-2017109131

PATIENT
  Sex: Male
  Weight: 99.77 kg

DRUGS (2)
  1. LYRICA [Suspect]
     Active Substance: PREGABALIN
     Indication: NEURALGIA
     Dosage: 150 MG, 4X/DAY
     Route: 048
  2. LYRICA [Suspect]
     Active Substance: PREGABALIN
     Dosage: 150 MG, 4X/DAY (TAKE 2 IN THE MORNING AND 2 AT NIGHT)
     Route: 048

REACTIONS (4)
  - Off label use [Not Recovered/Not Resolved]
  - Weight increased [Unknown]
  - Withdrawal syndrome [Unknown]
  - Insomnia [Unknown]
